FAERS Safety Report 8737663 (Version 2)
Quarter: 2013Q4

REPORT INFORMATION
  Report Type: Spontaneous
  Country: JP (occurrence: JP)
  Receive Date: 20120822
  Receipt Date: 20131031
  Transmission Date: 20140711
  Serious: Yes (Other)
  Sender: FDA-Public Use
  Company Number: JP-009507513-1208JPN003903

PATIENT
  Sex: 0

DRUGS (1)
  1. JANUVIA TABLETS 25MG [Suspect]
     Route: 048
     Dates: start: 201207

REACTIONS (2)
  - Blood creatine phosphokinase increased [Unknown]
  - Muscular weakness [Unknown]
